FAERS Safety Report 23556584 (Version 5)
Quarter: 2024Q2

REPORT INFORMATION
  Report Type: Spontaneous
  Country: JP (occurrence: JP)
  Receive Date: 20240223
  Receipt Date: 20240505
  Transmission Date: 20240716
  Serious: Yes (Hospitalization, Disabling, Other)
  Sender: FDA-Public Use
  Company Number: JP-MSD-M2024-00355

PATIENT
  Age: 46 Year
  Sex: Male

DRUGS (2)
  1. LAGEVRIO [Suspect]
     Active Substance: MOLNUPIRAVIR
     Indication: COVID-19 treatment
     Dosage: 800 MILLIGRAM, BID
     Route: 048
     Dates: start: 20240106, end: 20240110
  2. SOTROVIMAB [Concomitant]
     Active Substance: SOTROVIMAB
     Indication: COVID-19
     Dosage: UNK
     Route: 051
     Dates: start: 20240105

REACTIONS (15)
  - Hypertension [Unknown]
  - Cerebellar infarction [Unknown]
  - Cerebral infarction [Unknown]
  - Taste disorder [Unknown]
  - Staphylococcal infection [Unknown]
  - Tracheostomy [Unknown]
  - Hypokalaemia [Recovering/Resolving]
  - Pneumonia bacterial [Recovering/Resolving]
  - Haematochezia [Recovering/Resolving]
  - Sepsis [Unknown]
  - White blood cell count decreased [Recovered/Resolved]
  - Antimicrobial susceptibility test resistant [Unknown]
  - Streptococcus test positive [Unknown]
  - Sputum increased [Unknown]
  - Excessive granulation tissue [Unknown]

NARRATIVE: CASE EVENT DATE: 20240109
